FAERS Safety Report 9363563 (Version 1)
Quarter: 2013Q2

REPORT INFORMATION
  Report Type: Spontaneous
  Country: RU (occurrence: None)
  Receive Date: 20130618
  Receipt Date: 20130618
  Transmission Date: 20140414
  Serious: Yes (Other)
  Sender: FDA-Public Use
  Company Number: RU-1198650

PATIENT
  Age: 62 Year
  Sex: Female

DRUGS (1)
  1. TRAVATAN 0.004 % OPHTHALMIC SOLUTION (TRAVATAN 0.004%) [Suspect]
     Indication: GLAUCOMA
     Route: 047
     Dates: start: 20130417, end: 20130531

REACTIONS (2)
  - Cystoid macular oedema [None]
  - Visual acuity reduced [None]
